FAERS Safety Report 12577912 (Version 2)
Quarter: 2018Q1

REPORT INFORMATION
  Report Type: Other
  Country: GB (occurrence: GB)
  Receive Date: 20160721
  Receipt Date: 20180110
  Transmission Date: 20180508
  Serious: Yes (Hospitalization, Other)
  Sender: FDA-Public Use
  Company Number: GB-MACLEODS PHARMACEUTICALS US LTD-MAC2015002175

PATIENT

DRUGS (21)
  1. OLANZAPINE. [Suspect]
     Active Substance: OLANZAPINE
     Dosage: 1 DF, PRN (1 DF=5-10MG MAXIMUM UPTO 20 MG DAILY)
     Route: 048
     Dates: start: 20150330, end: 20150412
  2. ABILIFY [Suspect]
     Active Substance: ARIPIPRAZOLE
     Dosage: 15 MG, QD
     Route: 065
     Dates: start: 20150407
  3. CLOPIXOL-ACUPHASE [Suspect]
     Active Substance: ZUCLOPENTHIXOL
     Dosage: 150 MG, QD, INJECTION
     Route: 030
     Dates: start: 20150412, end: 20150412
  4. ABILIFY [Suspect]
     Active Substance: ARIPIPRAZOLE
     Indication: BIPOLAR I DISORDER
     Dosage: 10 MG
     Route: 065
     Dates: start: 20150330, end: 20150413
  5. CLOPIXOL-ACUPHASE [Suspect]
     Active Substance: ZUCLOPENTHIXOL
     Dosage: 100 MG, INJECTION
     Route: 030
     Dates: start: 20150413, end: 20150413
  6. OLANZAPINE. [Suspect]
     Active Substance: OLANZAPINE
     Indication: PRODUCT USED FOR UNKNOWN INDICATION
     Dosage: UP TO 20 MG AS REQUIRED
     Route: 065
     Dates: start: 20150330, end: 20150412
  7. LORAZEPAM. [Suspect]
     Active Substance: LORAZEPAM
     Dosage: 4 MG, UNK, INJECTION (1 DF=1-2 MG MAXIMUM 4 MG DAILY)
     Route: 030
     Dates: start: 20150401, end: 20150402
  8. LORAZEPAM. [Suspect]
     Active Substance: LORAZEPAM
     Dosage: UNK
  9. CLOPIXOL-ACUPHASE [Suspect]
     Active Substance: ZUCLOPENTHIXOL
     Dosage: 100 MG,
     Route: 030
     Dates: start: 20150401, end: 20150401
  10. ABILIFY [Suspect]
     Active Substance: ARIPIPRAZOLE
     Dosage: 20 MG, QD, TABLET
     Route: 048
     Dates: start: 20150409, end: 20150413
  11. ABILIFY [Suspect]
     Active Substance: ARIPIPRAZOLE
     Dosage: 15 MG, QD, TABLET
     Route: 048
     Dates: start: 20150130, end: 20150413
  12. CLONAZEPAM. [Suspect]
     Active Substance: CLONAZEPAM
     Indication: PRODUCT USED FOR UNKNOWN INDICATION
     Dosage: 1 MG, TID, TABLET
     Route: 048
     Dates: start: 20150329, end: 20150413
  13. CLOPIXOL-ACUPHASE [Suspect]
     Active Substance: ZUCLOPENTHIXOL
     Dosage: 100 MG, UNK, INJECTION
     Route: 030
     Dates: start: 20150401, end: 20150402
  14. LORAZEPAM. [Suspect]
     Active Substance: LORAZEPAM
     Dosage: 1 DF, PRN (1 DF= 1-2 MG MAXIMUM 4 MG DAILY) TABLET
     Route: 048
     Dates: start: 20150330, end: 20150412
  15. LORAZEPAM. [Suspect]
     Active Substance: LORAZEPAM
     Dosage: 4 MG, UNK, TABLET
     Route: 048
     Dates: start: 20150401, end: 20150402
  16. LORAZEPAM. [Suspect]
     Active Substance: LORAZEPAM
     Indication: PRODUCT USED FOR UNKNOWN INDICATION
     Dosage: 4 MG
     Route: 030
     Dates: start: 20150402, end: 20150402
  17. LORAZEPAM. [Suspect]
     Active Substance: LORAZEPAM
     Dosage: 1 DF, UNK, INJECTION
     Route: 030
     Dates: start: 20150330, end: 20150412
  18. OLANZAPINE. [Suspect]
     Active Substance: OLANZAPINE
     Dosage: 1 DF, PRN, TABLET (1 DF=5-10MG MAXIMUM UPTO 20 MG DAILY)
     Route: 048
     Dates: start: 20150330, end: 20150412
  19. ABILIFY [Suspect]
     Active Substance: ARIPIPRAZOLE
     Dosage: 15 MG, QD
     Route: 048
     Dates: start: 20150330
  20. CLOPIXOL-ACUPHASE [Suspect]
     Active Substance: ZUCLOPENTHIXOL
     Indication: MANIA
     Dosage: 100 MG
     Route: 030
     Dates: start: 20150402, end: 20150402
  21. CLOPIXOL-ACUPHASE [Suspect]
     Active Substance: ZUCLOPENTHIXOL
     Dosage: 50 MG, INJECTION
     Route: 030
     Dates: start: 20150331, end: 20150331

REACTIONS (3)
  - Neutropenia [Recovered/Resolved]
  - Medication error [Recovered/Resolved]
  - Prescribed overdose [Recovered/Resolved]

NARRATIVE: CASE EVENT DATE: 20150414
